FAERS Safety Report 5198902-4 (Version None)
Quarter: 2006Q4

REPORT INFORMATION
  Report Type: 
  Country: None (occurrence: None)
  Receive Date: 20060922
  Receipt Date: 20060802
  Transmission Date: 20070319
  Serious: No
  Sender: FDA-Public Use
  Company Number: 2006ADE/CIPRO-017

PATIENT
  Age: 48 Year
  Sex: Female

DRUGS (1)
  1. CIPROFLOXACIN [Suspect]
     Dosage: 500MG, ORAL
     Route: 048

REACTIONS (3)
  - JOINT SWELLING [None]
  - MUSCULOSKELETAL DISCOMFORT [None]
  - TENDONITIS [None]
